FAERS Safety Report 8788531 (Version 3)
Quarter: 2013Q1

REPORT INFORMATION
  Report Type: Report from Study
  Country: US (occurrence: US)
  Receive Date: 20120914
  Receipt Date: 20130102
  Transmission Date: 20140127
  Serious: Yes (Other)
  Sender: FDA-Public Use
  Company Number: US-VERTEX PHARMACEUTICAL INC.-AE-2012-010782

PATIENT
  Age: 59 Year
  Sex: Female
  Weight: 67 kg

DRUGS (6)
  1. VX-950 (TELAPREVIR) [Suspect]
     Indication: HEPATITIS C
     Dosage: 750 MG, TID
     Route: 048
     Dates: start: 20120710
  2. PEGASYS [Suspect]
     Indication: HEPATITIS C
     Dosage: 180 ?G, QW
     Route: 058
     Dates: start: 20120710
  3. PEGASYS [Suspect]
     Dosage: 90 ?G, QW
     Route: 058
  4. RIBASPHERE [Suspect]
     Indication: HEPATITIS C
     Dosage: 400 MG, BID
     Route: 048
     Dates: start: 20120710
  5. RIBASPHERE [Suspect]
     Dosage: 600 MG, QD
  6. CLONIDINE [Concomitant]
     Dosage: 1 DF, UNK

REACTIONS (8)
  - Anaemia [Unknown]
  - Depression [Unknown]
  - Anxiety [Unknown]
  - Dizziness [Unknown]
  - Decreased appetite [Unknown]
  - Overdose [Unknown]
  - Fatigue [Unknown]
  - Asthenia [Unknown]
